FAERS Safety Report 8359898-7 (Version None)
Quarter: 2012Q2

REPORT INFORMATION
  Report Type: 
  Country: None (occurrence: None)
  Receive Date: 20120515
  Receipt Date: 20120510
  Transmission Date: 20120825
  Serious: Yes (Hospitalization)
  Sender: FDA-Public Use
  Company Number: FR-PFIZER INC-2012114471

PATIENT
  Age: 52 Year
  Sex: Female

DRUGS (5)
  1. GEMZAR [Suspect]
     Indication: OVARIAN CANCER RECURRENT
     Dosage: 1670 MG DAILY
     Route: 042
     Dates: start: 20120215, end: 20120215
  2. METHYLPREDNISOLONE [Suspect]
     Indication: PREMEDICATION
     Dosage: 60MG DAILY
     Route: 042
     Dates: start: 20120215, end: 20120215
  3. METHYLPREDNISOLONE [Suspect]
     Indication: OVARIAN CANCER
  4. ZOFRAN [Suspect]
     Indication: PROPHYLAXIS OF NAUSEA AND VOMITING
     Dosage: 8MG DAILY
     Route: 042
     Dates: start: 20120215, end: 20120215
  5. ELOXATIN [Suspect]
     Indication: OVARIAN CANCER RECURRENT
     Dosage: 170MG DAILY
     Route: 042
     Dates: start: 20120215, end: 20120215

REACTIONS (1)
  - RESPIRATORY DISTRESS [None]
